FAERS Safety Report 5360987-X (Version None)
Quarter: 2007Q2

REPORT INFORMATION
  Report Type: 
  Country: None (occurrence: None)
  Receive Date: 20070618
  Receipt Date: 20070606
  Transmission Date: 20071010
  Serious: Yes (Death, Other)
  Sender: FDA-Public Use
  Company Number: FR-PFIZER INC-2007038905

PATIENT
  Sex: Male
  Weight: 75 kg

DRUGS (4)
  1. SUTENT [Suspect]
     Indication: METASTATIC RENAL CELL CARCINOMA
     Dosage: DAILY DOSE:50MG
  2. VASTEN [Concomitant]
     Dosage: TEXT:20 MG-FREQ:ONE DOSAGE, DAILY
  3. TRILEPTAL [Concomitant]
  4. RIVOTRIL [Concomitant]

REACTIONS (15)
  - ASTHENIA [None]
  - BLISTER [None]
  - BLOOD PRESSURE INCREASED [None]
  - CARDIAC FAILURE [None]
  - DYSGEUSIA [None]
  - DYSPNOEA EXERTIONAL [None]
  - ECZEMA [None]
  - GASTROINTESTINAL DISORDER [None]
  - HAEMORRHOIDS [None]
  - PANCYTOPENIA [None]
  - PRURIGO [None]
  - PRURITUS [None]
  - RENAL FAILURE ACUTE [None]
  - SKIN INJURY [None]
  - SKIN ULCER [None]
